FAERS Safety Report 9652133 (Version 2)
Quarter: 2013Q4

REPORT INFORMATION
  Report Type: Report from Study
  Country: BR (occurrence: BR)
  Receive Date: 20131029
  Receipt Date: 20131029
  Transmission Date: 20140711
  Serious: Yes (Hospitalization, Disabling, Other)
  Sender: FDA-Public Use
  Company Number: PHHY2013BR108814

PATIENT
  Age: 58 Year
  Sex: Female

DRUGS (11)
  1. DIOVAN HCT [Suspect]
     Indication: HYPERTENSION
     Dosage: 1 DF (320/12.5MG), QD (IN THE MORNING)
     Route: 048
  2. APRESOLINA [Concomitant]
     Indication: HYPERTENSION
     Dosage: 3 TABLETS (50 MG), DAILY
     Route: 048
  3. ATENSINA [Concomitant]
     Indication: HYPERTENSION
     Dosage: 3 TABLETS (200 MG), DAILY
     Route: 048
  4. LEVOTHYROXINE SODIUM [Concomitant]
     Indication: THYROID DISORDER
     Dosage: 1 TABLET (88 MG), DAILY
     Route: 048
  5. ALVESCO [Concomitant]
     Indication: ASTHMA
     Dosage: 160/120 MG, ONCE OR TWICE DAILY (USED ONLY WHEN EXPERIENCED ASTHMA)
  6. TRAMADOL [Concomitant]
     Indication: SPINAL OPERATION
     Dosage: 3 TABLETS (50 MG), DAILY
     Route: 048
     Dates: start: 201304, end: 201305
  7. MORFINE [Concomitant]
     Indication: SPINAL OPERATION
     Dosage: UNK UKN, UNK
  8. LOSARTAN [Concomitant]
     Indication: HYPERTENSION
     Dosage: 2 TABLETS (50 MG), DAILY
     Route: 048
  9. NPH INSULIN [Concomitant]
     Indication: DIABETES MELLITUS
     Dosage: 30 MG, UNK
  10. NPH INSULIN [Concomitant]
     Dosage: 20 MG, UNK
  11. FORMOCAPS [Concomitant]
     Indication: ASTHMA
     Dosage: UNK UKN, UNK

REACTIONS (13)
  - Coma [Recovered/Resolved]
  - Pneumonia [Recovered/Resolved]
  - Memory impairment [Unknown]
  - Abasia [Recovering/Resolving]
  - Cerebrovascular accident [Recovering/Resolving]
  - Monoplegia [Recovering/Resolving]
  - Venous occlusion [Recovered/Resolved]
  - Hypoglycaemia [Recovering/Resolving]
  - Blood test abnormal [Recovering/Resolving]
  - Neuropathy peripheral [Unknown]
  - Feeling abnormal [Unknown]
  - Blood pressure fluctuation [Recovering/Resolving]
  - Pain in extremity [Unknown]
